FAERS Safety Report 9179711 (Version 1)
Quarter: 2012Q4

REPORT INFORMATION
  Report Type: 
  Country: US (occurrence: US)
  Receive Date: 20121029
  Receipt Date: 20121029
  Transmission Date: 20130627
  Serious: Yes (Hospitalization)
  Sender: FDA-Public Use
  Company Number: US-B.I. PHARMACEUTICALS,INC./RIDGEFIELD-2012-BP-26250BP

PATIENT
  Age: 66 Year
  Sex: Male

DRUGS (2)
  1. PRADAXA [Suspect]
     Indication: ATRIAL FIBRILLATION
     Dosage: 300 mg
     Route: 048
     Dates: start: 2012
  2. KEPPRA [Concomitant]
     Indication: CONVULSION

REACTIONS (3)
  - Cerebrovascular accident [Recovered/Resolved with Sequelae]
  - Cerebral infarction [Recovered/Resolved with Sequelae]
  - Hemiparesis [Recovered/Resolved with Sequelae]
